FAERS Safety Report 5881351-0 (Version None)
Quarter: 2008Q3

REPORT INFORMATION
  Report Type: 
  Country: None (occurrence: None)
  Receive Date: 20080912
  Receipt Date: 20080627
  Transmission Date: 20090109
  Serious: No
  Sender: FDA-Public Use
  Company Number: US-ABBOTT-08P-163-0459822-00

PATIENT
  Sex: Female
  Weight: 61.29 kg

DRUGS (7)
  1. HUMIRA [Suspect]
     Indication: PSORIASIS
     Route: 058
     Dates: start: 20080627, end: 20080627
  2. HUMIRA [Suspect]
  3. HUMIRA [Suspect]
  4. ZOLPIDEM TARTRATE [Concomitant]
     Indication: SLEEP DISORDER THERAPY
     Route: 048
  5. SENEMENT [Concomitant]
     Indication: RESTLESS LEGS SYNDROME
     Route: 048
  6. KAPSOVIT [Concomitant]
     Indication: ROUTINE HEALTH MAINTENANCE
     Route: 048
  7. INHALERS [Concomitant]
     Indication: ASTHMA
     Route: 055

REACTIONS (2)
  - EAR DISCOMFORT [None]
  - FEELING ABNORMAL [None]
